FAERS Safety Report 8515630-5 (Version None)
Quarter: 2012Q3

REPORT INFORMATION
  Report Type: 
  Country: None (occurrence: None)
  Receive Date: 20120717
  Receipt Date: 20120712
  Transmission Date: 20120928
  Serious: Yes (Other)
  Sender: FDA-Public Use
  Company Number: PHHY2012JP056480

PATIENT
  Age: 54 Year
  Sex: Female

DRUGS (1)
  1. IMATINIB MESYLATE [Suspect]
     Indication: CHRONIC MYELOID LEUKAEMIA
     Route: 048
     Dates: start: 20020101, end: 20110201

REACTIONS (9)
  - NAUSEA [None]
  - INSOMNIA [None]
  - MUSCLE SPASMS [None]
  - WEIGHT DECREASED [None]
  - FOOT DEFORMITY [None]
  - NEOPLASM MALIGNANT [None]
  - OEDEMA [None]
  - UTERINE CANCER [None]
  - PALLOR [None]
